FAERS Safety Report 22085375 (Version 1)
Quarter: 2023Q1

REPORT INFORMATION
  Report Type: Spontaneous
  Country: US (occurrence: None)
  Receive Date: 20230310
  Receipt Date: 20230310
  Transmission Date: 20230418
  Serious: No
  Sender: FDA-Public Use
  Company Number: None

PATIENT
  Age: 58 Year
  Sex: Male
  Weight: 133 kg

DRUGS (4)
  1. CEFEPIME [Suspect]
     Active Substance: CEFEPIME HYDROCHLORIDE
     Indication: Wound infection
     Dosage: FREQUENCY : TWICE A DAY;?
     Route: 042
     Dates: start: 20230112, end: 20230309
  2. CEFEPIME [Suspect]
     Active Substance: CEFEPIME HYDROCHLORIDE
     Indication: Postoperative wound infection
  3. DAPTOMYCIN [Suspect]
     Active Substance: DAPTOMYCIN
     Indication: Wound infection
     Dosage: FREQUENCY : DAILY;?
     Route: 042
     Dates: start: 20230112, end: 20230309
  4. DAPTOMYCIN [Suspect]
     Active Substance: DAPTOMYCIN
     Indication: Postoperative wound infection

REACTIONS (2)
  - Postoperative wound infection [None]
  - Impaired healing [None]

NARRATIVE: CASE EVENT DATE: 20230309
